FAERS Safety Report 9885338 (Version 1)
Quarter: 2014Q1

REPORT INFORMATION
  Report Type: Spontaneous
  Country: US (occurrence: US)
  Receive Date: 20140210
  Receipt Date: 20140210
  Transmission Date: 20141002
  Serious: No
  Sender: FDA-Public Use
  Company Number: US-PFIZER INC-2014037392

PATIENT
  Age: 61 Year
  Sex: Male
  Weight: 76.19 kg

DRUGS (2)
  1. LYRICA [Suspect]
     Indication: BACK PAIN
     Dosage: 75 MG, 4X/DAY
     Dates: end: 20140127
  2. LYRICA [Suspect]
     Indication: PAIN IN EXTREMITY

REACTIONS (4)
  - Feeling abnormal [Unknown]
  - Anxiety [Recovering/Resolving]
  - Claustrophobia [Recovering/Resolving]
  - Panic reaction [Recovering/Resolving]
